FAERS Safety Report 21882898 (Version 2)
Quarter: 2023Q1

REPORT INFORMATION
  Report Type: Spontaneous
  Country: IT (occurrence: IT)
  Receive Date: 20230119
  Receipt Date: 20230201
  Transmission Date: 20230417
  Serious: Yes (Other)
  Sender: FDA-Public Use
  Company Number: IT-TEVA-2023-IT-2846688

PATIENT
  Age: 79 Year
  Sex: Female

DRUGS (4)
  1. SORAFENIB [Suspect]
     Active Substance: SORAFENIB
     Indication: Hepatocellular carcinoma
     Dosage: 400 MILLIGRAM DAILY;
     Route: 065
  2. SORAFENIB [Suspect]
     Active Substance: SORAFENIB
     Dosage: 600 MILLIGRAM DAILY;
     Route: 065
     Dates: end: 201607
  3. SORAFENIB [Suspect]
     Active Substance: SORAFENIB
     Dosage: 400 MILLIGRAM DAILY; SWITCHED TO INITIAL DOSE
     Route: 065
  4. SORAFENIB [Suspect]
     Active Substance: SORAFENIB
     Dosage: 100 MILLIGRAM DAILY; DOSE WAS REDUCED
     Route: 065
     Dates: end: 201710

REACTIONS (5)
  - Diarrhoea [Unknown]
  - Abdominal distension [Unknown]
  - Fatigue [Unknown]
  - Alopecia [Unknown]
  - Dyskinesia [Unknown]
